FAERS Safety Report 4391789-9 (Version None)
Quarter: 2004Q3

REPORT INFORMATION
  Report Type: 
  Country: None (occurrence: None)
  Receive Date: 20040701
  Receipt Date: 20040621
  Transmission Date: 20050211
  Serious: Yes (Other)
  Sender: FDA-Public Use
  Company Number: HQWYE085224MAY04

PATIENT
  Age: 49 Year
  Sex: Female
  Weight: 70.37 kg

DRUGS (4)
  1. EFFEXOR XR [Suspect]
     Indication: ATTENTION DEFICIT/HYPERACTIVITY DISORDER
     Dosage: 75 MG 1 X PER 1 DAY, ORAL
     Route: 048
     Dates: start: 20030320, end: 20030324
  2. EFFEXOR XR [Suspect]
     Indication: HOT FLUSH
     Dosage: 75 MG 1 X PER 1 DAY, ORAL
     Route: 048
     Dates: start: 20030320, end: 20030324
  3. REMIFEMIN (CIMIFUGA) [Concomitant]
  4. NASONEX [Concomitant]

REACTIONS (1)
  - SEROTONIN SYNDROME [None]
